FAERS Safety Report 15805005 (Version 1)
Quarter: 2019Q1

REPORT INFORMATION
  Report Type: Spontaneous
  Country: US (occurrence: US)
  Receive Date: 20190110
  Receipt Date: 20190110
  Transmission Date: 20190417
  Serious: No
  Sender: FDA-Public Use
  Company Number: US-009507513-1812USA010736

PATIENT
  Age: 33 Year
  Sex: Female

DRUGS (4)
  1. VITAMINS (UNSPECIFIED) [Concomitant]
     Active Substance: VITAMINS
  2. NUVARING [Suspect]
     Active Substance: ETHINYL ESTRADIOL\ETONOGESTREL
     Indication: CONTRACEPTION
     Dosage: STRENGTH 0.015/0.12 (UNIT UNKNOWN),1 DOSAGE FORM, FOR YEARS
     Route: 067
  3. NUVARING [Suspect]
     Active Substance: ETHINYL ESTRADIOL\ETONOGESTREL
     Dosage: STRENGTH 0.015/0.12 (UNIT UNKNOWN), ONE RING
     Route: 067
     Dates: start: 20181218
  4. NUVARING [Suspect]
     Active Substance: ETHINYL ESTRADIOL\ETONOGESTREL
     Dosage: STRENGTH 0.015/0.12 (UNIT UNKNOWN), ONE RING, REMOVED TWO DAYS EARLIER THAN SCHEDULED
     Route: 067
     Dates: start: 20181119, end: 20181214

REACTIONS (4)
  - Vulvovaginal burning sensation [Unknown]
  - Inappropriate schedule of product administration [Unknown]
  - Vulvovaginal discomfort [Unknown]
  - Cervix inflammation [Recovered/Resolved]

NARRATIVE: CASE EVENT DATE: 20181209
